FAERS Safety Report 12627368 (Version 1)
Quarter: 2016Q3

REPORT INFORMATION
  Report Type: Report from Study
  Country: US (occurrence: US)
  Receive Date: 20160805
  Receipt Date: 20160805
  Transmission Date: 20161109
  Serious: No
  Sender: FDA-Public Use
  Company Number: US-AMGEN-USASL2015111308

PATIENT
  Age: 69 Year
  Sex: Male

DRUGS (4)
  1. NPLATE [Suspect]
     Active Substance: ROMIPLOSTIM
     Indication: PLATELET COUNT INCREASED
     Dosage: 750 MUG, Q3WK
     Route: 065
     Dates: start: 20110101
  2. VELCADE [Concomitant]
     Active Substance: BORTEZOMIB
     Dosage: UNK
  3. NPLATE [Suspect]
     Active Substance: ROMIPLOSTIM
     Indication: IMMUNE THROMBOCYTOPENIC PURPURA
  4. ATIVAN [Concomitant]
     Active Substance: LORAZEPAM
     Dosage: UNK

REACTIONS (14)
  - Inappropriate schedule of drug administration [Unknown]
  - Petechiae [Unknown]
  - Laceration [Unknown]
  - Dizziness [Unknown]
  - Phantom pain [Unknown]
  - Injection site pain [Recovered/Resolved]
  - Therapy non-responder [Unknown]
  - Respiratory tract congestion [Recovering/Resolving]
  - Injection site bruising [Unknown]
  - Fatigue [Recovered/Resolved]
  - Platelet count abnormal [Unknown]
  - Arthralgia [Unknown]
  - Accidental overdose [Unknown]
  - Wrong drug administered [Unknown]
